FAERS Safety Report 16040185 (Version 1)
Quarter: 2019Q1

REPORT INFORMATION
  Report Type: Spontaneous
  Country: FR (occurrence: FR)
  Receive Date: 20190306
  Receipt Date: 20190306
  Transmission Date: 20190418
  Serious: Yes (Hospitalization)
  Sender: FDA-Public Use
  Company Number: FR-BAUSCH-BL-2019-006612

PATIENT
  Age: 71 Year
  Sex: Male
  Weight: 82 kg

DRUGS (25)
  1. INNOHEP [Concomitant]
     Active Substance: TINZAPARIN SODIUM
     Indication: THROMBOSIS PROPHYLAXIS
     Route: 058
     Dates: start: 20180121
  2. COUMADINE [Concomitant]
     Active Substance: WARFARIN SODIUM
     Route: 048
     Dates: start: 20190201, end: 20190208
  3. LEVOTHYROX [Concomitant]
     Active Substance: LEVOTHYROXINE
     Indication: THYROIDECTOMY
     Route: 048
     Dates: start: 2000
  4. CYCLOPHOSPHAMIDE. [Suspect]
     Active Substance: CYCLOPHOSPHAMIDE
     Indication: AMYLOIDOSIS
     Route: 048
     Dates: start: 20181116, end: 20190208
  5. DARATUMUMAB [Suspect]
     Active Substance: DARATUMUMAB
     Indication: OFF LABEL USE
  6. VELCADE [Suspect]
     Active Substance: BORTEZOMIB
     Indication: AMYLOIDOSIS
     Dosage: LYOPHILIZED POWDER
     Route: 058
     Dates: start: 20181116, end: 20190208
  7. ORACILLINE [Concomitant]
     Active Substance: PENICILLIN V
     Indication: ANTIBIOTIC PROPHYLAXIS
     Route: 048
     Dates: start: 20181124, end: 20190111
  8. ORACILLINE [Concomitant]
     Active Substance: PENICILLIN V
     Route: 048
     Dates: start: 20190118
  9. COUMADINE [Concomitant]
     Active Substance: WARFARIN SODIUM
     Indication: PULMONARY EMBOLISM
     Route: 048
     Dates: start: 20190118, end: 20190201
  10. PERMIXON [Concomitant]
     Active Substance: HERBALS\SAW PALMETTO
     Indication: BENIGN PROSTATIC HYPERPLASIA
     Route: 048
     Dates: start: 20180807
  11. VELCADE [Suspect]
     Active Substance: BORTEZOMIB
     Indication: OFF LABEL USE
  12. VELCADE [Suspect]
     Active Substance: BORTEZOMIB
     Indication: PRODUCT USE IN UNAPPROVED INDICATION
  13. CYCLOPHOSPHAMIDE. [Suspect]
     Active Substance: CYCLOPHOSPHAMIDE
     Indication: PRODUCT USE IN UNAPPROVED INDICATION
  14. DEXAMETHASONE. [Suspect]
     Active Substance: DEXAMETHASONE
     Indication: PRODUCT USE IN UNAPPROVED INDICATION
  15. CYCLOPHOSPHAMIDE. [Suspect]
     Active Substance: CYCLOPHOSPHAMIDE
     Indication: OFF LABEL USE
  16. DARATUMUMAB [Suspect]
     Active Substance: DARATUMUMAB
     Indication: AMYLOIDOSIS
     Route: 058
  17. COUMADINE [Concomitant]
     Active Substance: WARFARIN SODIUM
     Route: 048
     Dates: start: 20190209
  18. ALLOPURINOL. [Concomitant]
     Active Substance: ALLOPURINOL
     Indication: HYPERURICAEMIA
     Route: 048
     Dates: start: 20180807
  19. DARATUMUMAB [Suspect]
     Active Substance: DARATUMUMAB
     Indication: PRODUCT USE IN UNAPPROVED INDICATION
  20. INNOHEP [Concomitant]
     Active Substance: TINZAPARIN SODIUM
     Route: 058
     Dates: start: 20180901
  21. LASILIX [Concomitant]
     Active Substance: FUROSEMIDE
     Indication: HYPERTENSION
     Route: 048
     Dates: start: 20181201
  22. DEXAMETHASONE. [Suspect]
     Active Substance: DEXAMETHASONE
     Indication: AMYLOIDOSIS
     Route: 048
     Dates: start: 20181116, end: 20190209
  23. DEXAMETHASONE. [Suspect]
     Active Substance: DEXAMETHASONE
     Indication: OFF LABEL USE
  24. TAMSULOSINE [Concomitant]
     Active Substance: TAMSULOSIN HYDROCHLORIDE
     Indication: BENIGN PROSTATIC HYPERPLASIA
     Route: 048
     Dates: start: 20180807
  25. ZELITREX [Concomitant]
     Active Substance: VALACYCLOVIR HYDROCHLORIDE
     Indication: ANTIVIRAL PROPHYLAXIS
     Route: 048
     Dates: start: 20181201

REACTIONS (6)
  - Hiccups [Recovering/Resolving]
  - Bronchitis [Recovering/Resolving]
  - Off label use [Unknown]
  - Product use in unapproved indication [Unknown]
  - Cough [Recovering/Resolving]
  - Pyrexia [Recovering/Resolving]

NARRATIVE: CASE EVENT DATE: 20181116
